FAERS Safety Report 9617463 (Version 1)
Quarter: 2013Q4

REPORT INFORMATION
  Report Type: Spontaneous
  Country: DE (occurrence: DE)
  Receive Date: 20131011
  Receipt Date: 20131011
  Transmission Date: 20140711
  Serious: Yes (Hospitalization, Congenital Anomaly)
  Sender: FDA-Public Use
  Company Number: DE-TEVA-435736GER

PATIENT
  Age: 1 Day
  Sex: Female

DRUGS (2)
  1. LAMOTRIGIN [Suspect]
     Route: 064
  2. FOLIO [Concomitant]
     Route: 064

REACTIONS (3)
  - Duodenal stenosis [Recovered/Resolved with Sequelae]
  - Peritoneal adhesions [Recovered/Resolved with Sequelae]
  - Atrial septal defect [Unknown]
